FAERS Safety Report 5810320-1 (Version None)
Quarter: 2008Q3

REPORT INFORMATION
  Report Type: 
  Country: None (occurrence: None)
  Receive Date: 20080715
  Receipt Date: 20080403
  Transmission Date: 20090109
  Serious: No
  Sender: FDA-Public Use
  Company Number: A0719155A

PATIENT
  Sex: Female

DRUGS (4)
  1. IMITREX [Suspect]
     Indication: MIGRAINE
     Dosage: 100MG AS REQUIRED
     Route: 048
  2. IMITREX [Suspect]
     Dosage: 3SPR TWICE PER DAY
     Route: 045
     Dates: start: 19980101
  3. IMITREX [Suspect]
     Route: 058
     Dates: start: 19980101
  4. NO CONCURRENT MEDICATION [Concomitant]

REACTIONS (2)
  - DRUG INEFFECTIVE [None]
  - SOMNOLENCE [None]
